FAERS Safety Report 19745434 (Version 2)
Quarter: 2021Q3

REPORT INFORMATION
  Report Type: Spontaneous
  Country: DE (occurrence: DE)
  Receive Date: 20210825
  Receipt Date: 20210829
  Transmission Date: 20211014
  Serious: Yes (Death, Life-Threatening, Hospitalization, Other)
  Sender: FDA-Public Use
  Company Number: DE-TEVA-2021-DE-1944949

PATIENT
  Age: 6 Month
  Weight: 7.6 kg

DRUGS (2)
  1. LIDOCAINE 2% [Suspect]
     Active Substance: LIDOCAINE
     Indication: FEBRILE CONVULSION
     Dosage: 30?FOLD INTRAOSSEOUS ADMINISTRATION TO BE ASSUMED, ROUTE OF ADMINISTRATION: INTRAOSSEOUS.:OVERDOSE:O
     Route: 050
     Dates: start: 2021
  2. MIDAZOLAM. [Suspect]
     Active Substance: MIDAZOLAM
     Dosage: MANUFACTURER UNKNOWN:OVERDOSE:UNIT DOSE:3MILLIGRAM

REACTIONS (3)
  - Off label use [Unknown]
  - Overdose [Fatal]
  - Cardiac arrest [Fatal]

NARRATIVE: CASE EVENT DATE: 2021
